FAERS Safety Report 5068049-6 (Version None)
Quarter: 2006Q3

REPORT INFORMATION
  Report Type: 
  Country: None (occurrence: None)
  Receive Date: 20060731
  Receipt Date: 20060717
  Transmission Date: 20061208
  Serious: Yes (Hospitalization, Other)
  Sender: FDA-Public Use
  Company Number: 2006090179

PATIENT
  Sex: Male
  Weight: 78.4723 kg

DRUGS (2)
  1. BEXTRA [Suspect]
     Indication: ARTHRITIS
     Dosage: 20 MG (1 IN 1 D),
  2. BEXTRA [Suspect]
     Indication: BACK DISORDER
     Dosage: 20 MG (1 IN 1 D),

REACTIONS (5)
  - CARDIAC DISORDER [None]
  - CARDIAC INFECTION [None]
  - CONDITION AGGRAVATED [None]
  - HYPERTENSION [None]
  - MYOCARDIAL INFARCTION [None]
